FAERS Safety Report 11432661 (Version 3)
Quarter: 2020Q2

REPORT INFORMATION
  Report Type: Report from Study
  Country: None (occurrence: ES)
  Receive Date: 20150828
  Receipt Date: 20200508
  Transmission Date: 20200713
  Serious: Yes (Other)
  Sender: FDA-Public Use
  Company Number: ES-ABBVIE-15P-144-1449395-00

PATIENT
  Age: 29 Year
  Sex: Male
  Weight: 100 kg

DRUGS (6)
  1. HUMIRA [Suspect]
     Active Substance: ADALIMUMAB
     Indication: PSORIASIS
     Route: 058
     Dates: start: 20100621
  2. DIPRODERM [Concomitant]
     Active Substance: BETAMETHASONE DIPROPIONATE
     Dates: start: 20131028, end: 20141117
  3. DIPRODERM [Concomitant]
     Active Substance: BETAMETHASONE DIPROPIONATE
     Dates: start: 20130430, end: 20130708
  4. SIMPLE MENADERM [Concomitant]
     Indication: PSORIASIS
     Dates: start: 20141013
  5. DIPRODERM [Concomitant]
     Active Substance: BETAMETHASONE DIPROPIONATE
     Indication: PSORIASIS
     Dates: start: 20121126, end: 20130225
  6. DIPRODERM [Concomitant]
     Active Substance: BETAMETHASONE DIPROPIONATE
     Dates: start: 20141117

REACTIONS (1)
  - Sudden hearing loss [Recovered/Resolved]

NARRATIVE: CASE EVENT DATE: 20140615
